FAERS Safety Report 7212641-7 (Version None)
Quarter: 2011Q1

REPORT INFORMATION
  Report Type: 
  Country: None (occurrence: None)
  Receive Date: 20110106
  Receipt Date: 20110104
  Transmission Date: 20110831
  Serious: No
  Sender: FDA-Public Use
  Company Number: US-PFIZER INC-2011002255

PATIENT
  Sex: Male
  Weight: 68 kg

DRUGS (7)
  1. MAGNESIUM OXIDE [Concomitant]
     Dosage: UNK
  2. FOLIC ACID [Concomitant]
     Dosage: UNK
  3. LISINOPRIL [Concomitant]
     Indication: HYPERTENSION
     Dosage: UNK
  4. TRAMADOL [Concomitant]
     Dosage: UNK
  5. NEURONTIN [Suspect]
     Indication: ARTHRALGIA
     Dosage: 100 MG, 3X/DAY
     Route: 048
     Dates: start: 20100101
  6. RANITIDINE [Concomitant]
     Dosage: UNK
  7. LASIX [Concomitant]
     Dosage: UNK

REACTIONS (2)
  - DIZZINESS [None]
  - ABDOMINAL DISTENSION [None]
